FAERS Safety Report 24183512 (Version 1)
Quarter: 2024Q3

REPORT INFORMATION
  Report Type: Spontaneous
  Country: GB (occurrence: GB)
  Receive Date: 20240807
  Receipt Date: 20240807
  Transmission Date: 20241016
  Serious: Yes (Hospitalization, Other)
  Sender: PFIZER
  Company Number: None

PATIENT
  Age: 33 Year
  Sex: Male

DRUGS (9)
  1. DALTEPARIN SODIUM [Suspect]
     Active Substance: DALTEPARIN SODIUM
     Indication: Thrombosis prophylaxis
  2. LANSOPRAZOLE [Suspect]
     Active Substance: LANSOPRAZOLE
  3. BRIVARACETAM [Suspect]
     Active Substance: BRIVARACETAM
  4. CENOBAMATE [Suspect]
     Active Substance: CENOBAMATE
  5. CLOBAZAM [Suspect]
     Active Substance: CLOBAZAM
  6. LACOSAMIDE [Suspect]
     Active Substance: LACOSAMIDE
  7. VALPROATE SODIUM [Suspect]
     Active Substance: VALPROATE SODIUM
     Indication: Epilepsy
  8. DOCUSATE [Concomitant]
     Active Substance: DOCUSATE
  9. ACETAMINOPHEN [Concomitant]
     Active Substance: ACETAMINOPHEN

REACTIONS (2)
  - Thrombocytopenia [Not Recovered/Not Resolved]
  - Seizure [Not Recovered/Not Resolved]

NARRATIVE: CASE EVENT DATE: 20240726
